FAERS Safety Report 6685083-0 (Version None)
Quarter: 2010Q2

REPORT INFORMATION
  Report Type: 
  Country: None (occurrence: None)
  Receive Date: 20100416
  Receipt Date: 20100406
  Transmission Date: 20101027
  Serious: Yes (Hospitalization)
  Sender: FDA-Public Use
  Company Number: B0645511A

PATIENT
  Sex: Female

DRUGS (5)
  1. COMBIVIR [Suspect]
     Indication: HIV INFECTION
     Route: 048
  2. LAMICTAL [Suspect]
     Indication: EPILEPSY
     Route: 065
  3. KALETRA [Suspect]
     Indication: HIV INFECTION
     Route: 065
  4. ADALAT [Concomitant]
     Route: 065
     Dates: start: 20091208
  5. CORTICOIDS [Concomitant]
     Indication: DRUG USE FOR UNKNOWN INDICATION
     Route: 065
     Dates: start: 20091211

REACTIONS (2)
  - DRUG EXPOSURE DURING PREGNANCY [None]
  - PREMATURE LABOUR [None]
